FAERS Safety Report 12095545 (Version 1)
Quarter: 2016Q1

REPORT INFORMATION
  Report Type: Spontaneous
  Country: US (occurrence: US)
  Receive Date: 20160219
  Receipt Date: 20160219
  Transmission Date: 20160526
  Serious: Yes (Death)
  Sender: FDA-Public Use
  Company Number: US-PFM-US-2016-0689

PATIENT
  Age: 38 Year
  Sex: Male
  Weight: 91.2 kg

DRUGS (8)
  1. DULOXETINE. [Suspect]
     Active Substance: DULOXETINE
     Indication: SUICIDE ATTEMPT
     Route: 065
  2. PREGABALIN. [Suspect]
     Active Substance: PREGABALIN
     Indication: SUICIDE ATTEMPT
     Route: 065
  3. DICLOFENAC [Suspect]
     Active Substance: DICLOFENAC
     Indication: SUICIDE ATTEMPT
     Route: 065
  4. LORAZEPAM. [Suspect]
     Active Substance: LORAZEPAM
     Indication: SUICIDE ATTEMPT
     Route: 065
  5. PROPRANOLOL INN [Suspect]
     Active Substance: PROPRANOLOL HYDROCHLORIDE
     Indication: SUICIDE ATTEMPT
     Route: 065
  6. TADALAFIL [Suspect]
     Active Substance: TADALAFIL
     Indication: SUICIDE ATTEMPT
     Route: 065
  7. VERAPAMIL [Suspect]
     Active Substance: VERAPAMIL HYDROCHLORIDE
     Indication: SUICIDE ATTEMPT
     Dosage: 80 MG THREE TIMES DAILY
     Route: 065
  8. OMEPRAZOLE. [Suspect]
     Active Substance: OMEPRAZOLE
     Indication: SUICIDE ATTEMPT
     Route: 065

REACTIONS (5)
  - Toxicity to various agents [Fatal]
  - Off label use [None]
  - Unresponsive to stimuli [Unknown]
  - Suicide attempt [Fatal]
  - Intentional overdose [Fatal]
